FAERS Safety Report 10169944 (Version 2)
Quarter: 2014Q3

REPORT INFORMATION
  Report Type: Spontaneous
  Country: GB (occurrence: GB)
  Receive Date: 20140513
  Receipt Date: 20140709
  Transmission Date: 20150326
  Serious: Yes (Hospitalization)
  Sender: FDA-Public Use
  Company Number: PHHY2014GB057259

PATIENT
  Sex: Male

DRUGS (17)
  1. EPILIM [Suspect]
     Active Substance: VALPROATE SODIUM
     Indication: PRODUCT USED FOR UNKNOWN INDICATION
     Dosage: 50 MG, BID
     Route: 048
  2. BUMETANIDE. [Suspect]
     Active Substance: BUMETANIDE
     Dosage: 500 UG, TID
     Route: 048
  3. METOPROLOL ACCORD HEALTHCARE [Suspect]
     Active Substance: METOPROLOL
     Dosage: 25 MILLIGRAM DAILY; 50MG TABLETS
     Route: 048
  4. CAPTOPRIL BRISTOL LABS [Suspect]
     Active Substance: CAPTOPRIL
     Dosage: 45 MILLIGRAM DAILY; 25MG TABLETS
     Route: 048
  5. CAPTOPRIL. [Suspect]
     Active Substance: CAPTOPRIL
     Dosage: 15 MG TID
     Route: 048
  6. SPIRONOLACTONE. [Suspect]
     Active Substance: SPIRONOLACTONE
     Dosage: 15 MG BID
     Route: 048
  7. LEVETIRACETAM ACCORD [Suspect]
     Active Substance: LEVETIRACETAM
     Dosage: 1000 MILLIGRAM DAILY;
     Route: 048
  8. PHENYTOIN. [Suspect]
     Active Substance: PHENYTOIN
     Dosage: 75 MG BID
     Route: 048
  9. PHENYTOIN FLYNN PHARMA [Suspect]
     Active Substance: PHENYTOIN
     Dosage: 150 MILLIGRAM DAILY; 50MG TABLETS
     Route: 048
  10. METOPROLOL [Suspect]
     Active Substance: METOPROLOL
     Dosage: 12.5 MG, BID
     Route: 048
  11. DIAZEPAM. [Suspect]
     Active Substance: DIAZEPAM
     Dosage: 3 MG QD
     Route: 048
  12. DIAZEPAM TEVA GENERICS BELGIUM [Suspect]
     Active Substance: DIAZEPAM
     Indication: PRODUCT USED FOR UNKNOWN INDICATION
     Dosage: 2 MG TABLETS
  13. BACLOFEN. [Suspect]
     Active Substance: BACLOFEN
     Dosage: 6 MG, QID
     Route: 048
  14. EPILIM [Suspect]
     Active Substance: VALPROATE SODIUM
     Dosage: 100 MG TABLET
  15. BACLOFEN. [Suspect]
     Active Substance: BACLOFEN
     Dosage: 24 MILLIGRAM DAILY; 10MG TABLETS
     Route: 048
  16. LEVETIRACETAM. [Suspect]
     Active Substance: LEVETIRACETAM
     Dosage: 500 MG BID
     Route: 048
  17. SPIRONOLACTONE. [Suspect]
     Active Substance: SPIRONOLACTONE
     Dosage: 30 MILLIGRAM DAILY; 25MG TABLETS
     Route: 048

REACTIONS (3)
  - Blood ketone body increased [Unknown]
  - Drug administered to patient of inappropriate age [Unknown]
  - Reaction to drug excipients [Unknown]
